FAERS Safety Report 5288961-2 (Version None)
Quarter: 2007Q2

REPORT INFORMATION
  Report Type: 
  Country: None (occurrence: None)
  Receive Date: 20070405
  Receipt Date: 20070327
  Transmission Date: 20071010
  Serious: Yes (Other)
  Sender: FDA-Public Use
  Company Number: DE-PFIZER INC-2007012604

PATIENT
  Sex: Male

DRUGS (3)
  1. ATORVASTATIN CALCIUM [Suspect]
     Indication: HYPERCHOLESTEROLAEMIA
     Dosage: DAILY DOSE:20MG-FREQ:DAILY
     Route: 048
  2. JODID [Concomitant]
  3. VALSARTAN [Concomitant]

REACTIONS (3)
  - HEARING DISABILITY [None]
  - NASOPHARYNGITIS [None]
  - TINNITUS [None]
